FAERS Safety Report 4900383-X (Version None)
Quarter: 2006Q1

REPORT INFORMATION
  Report Type: 
  Country: None (occurrence: None)
  Receive Date: 20060203
  Receipt Date: 20060126
  Transmission Date: 20060701
  Serious: Yes (Hospitalization)
  Sender: FDA-Public Use
  Company Number: US-JNJFOC-20060105753

PATIENT
  Sex: Male

DRUGS (6)
  1. INFLIXIMAB [Suspect]
     Indication: RHEUMATOID ARTHRITIS
     Route: 042
  2. CALCIUM GLUCONATE [Concomitant]
     Dosage: DAILY
  3. FOLIC ACID [Concomitant]
     Dosage: DAILY
  4. METHOTREXATE [Concomitant]
  5. VITAMIN E [Concomitant]
     Dosage: DAILY
  6. ASCORBIC ACID [Concomitant]
     Dosage: DAILY

REACTIONS (1)
  - CORONARY ARTERY DISEASE [None]
